FAERS Safety Report 7807598-1 (Version None)
Quarter: 2011Q4

REPORT INFORMATION
  Report Type: 
  Country: None (occurrence: None)
  Receive Date: 20111011
  Receipt Date: 20111006
  Transmission Date: 20120403
  Serious: Yes (Hospitalization)
  Sender: FDA-Public Use
  Company Number: BR-SHIRE-SPV1-2011-01280

PATIENT
  Sex: Female

DRUGS (1)
  1. VENVANSE [Suspect]
     Indication: PRODUCT USED FOR UNKNOWN INDICATION
     Dosage: 490 MG, ONE DOSE

REACTIONS (2)
  - OFF LABEL USE [None]
  - INTENTIONAL OVERDOSE [None]
